FAERS Safety Report 9831403 (Version 3)
Quarter: 2014Q1

REPORT INFORMATION
  Report Type: Report from Study
  Country: CA (occurrence: CA)
  Receive Date: 20140121
  Receipt Date: 20140224
  Transmission Date: 20141002
  Serious: No
  Sender: FDA-Public Use
  Company Number: CA-ROCHE-1330897

PATIENT
  Age: 62 Year
  Sex: Female

DRUGS (5)
  1. ACTEMRA [Suspect]
     Indication: RHEUMATOID ARTHRITIS
     Route: 042
     Dates: start: 20130927
  2. PREDNISONE [Concomitant]
  3. NAPROXEN [Concomitant]
  4. GABAPENTIN [Concomitant]
  5. CYMBALTA [Concomitant]

REACTIONS (1)
  - Nasopharyngitis [Recovering/Resolving]
